FAERS Safety Report 9484999 (Version 1)
Quarter: 2013Q3

REPORT INFORMATION
  Report Type: Spontaneous
  Country: US (occurrence: US)
  Receive Date: 20130828
  Receipt Date: 20130828
  Transmission Date: 20140515
  Serious: No
  Sender: FDA-Public Use
  Company Number: US-ABBOTT-13P-163-1098826-00

PATIENT
  Age: 66 Year
  Sex: Male

DRUGS (3)
  1. ANDROGEL [Suspect]
     Indication: BLOOD TESTOSTERONE DECREASED
     Dosage: 1 PUMP
     Route: 061
     Dates: start: 2012, end: 201302
  2. ANDROGEL [Suspect]
     Dosage: 2 PUMPS
     Route: 061
     Dates: start: 201302, end: 201305
  3. ANDROGEL [Suspect]
     Dosage: 3 PUMPS
     Route: 061
     Dates: start: 201305

REACTIONS (2)
  - Hyperaesthesia [Recovered/Resolved]
  - Nipple pain [Not Recovered/Not Resolved]
